FAERS Safety Report 7748192-0 (Version None)
Quarter: 2011Q3

REPORT INFORMATION
  Report Type: 
  Country: None (occurrence: None)
  Receive Date: 20110913
  Receipt Date: 20110630
  Transmission Date: 20111222
  Serious: Yes (Other)
  Sender: FDA-Public Use
  Company Number: US-ELI_LILLY_AND_COMPANY-US201107000757

PATIENT
  Sex: Female

DRUGS (2)
  1. CYMBALTA [Suspect]
     Indication: DEPRESSION
     Dosage: 30 MG, QD
  2. CYMBALTA [Suspect]
     Dosage: 30 MG, QD

REACTIONS (5)
  - TREMOR [None]
  - INTENTIONAL DRUG MISUSE [None]
  - SKIN DISCOLOURATION [None]
  - THINKING ABNORMAL [None]
  - YELLOW SKIN [None]
